FAERS Safety Report 8383916-3 (Version None)
Quarter: 2012Q2

REPORT INFORMATION
  Report Type: 
  Country: None (occurrence: None)
  Receive Date: 20120524
  Receipt Date: 20120524
  Transmission Date: 20120825
  Serious: Yes (Life-Threatening)
  Sender: FDA-Public Use
  Company Number: AT-BAYER-2012-051148

PATIENT
  Age: 36 Year
  Sex: Male
  Weight: 110 kg

DRUGS (3)
  1. OXAZEPAM [Concomitant]
     Dosage: 500 MG, TID
     Dates: start: 20120508, end: 20120513
  2. AVELOX [Suspect]
     Indication: WHITE BLOOD CELL ANALYSIS INCREASED
     Dosage: 400 MG, QD
     Route: 042
     Dates: start: 20120508, end: 20120512
  3. KEPPRA [Concomitant]
     Dosage: 500 MG, BID
     Dates: start: 20120508, end: 20120513

REACTIONS (2)
  - HEPATIC FAILURE [None]
  - HEPATORENAL SYNDROME [None]
